FAERS Safety Report 9562646 (Version 2)
Quarter: 2013Q4

REPORT INFORMATION
  Report Type: Spontaneous
  Country: JP (occurrence: JP)
  Receive Date: 20130927
  Receipt Date: 20131017
  Transmission Date: 20140711
  Serious: Yes (Hospitalization)
  Sender: FDA-Public Use
  Company Number: JP-ABBVIE-13P-087-1152163-00

PATIENT
  Age: 62 Year
  Sex: Male

DRUGS (6)
  1. KLARICID [Suspect]
     Indication: CHRONIC OBSTRUCTIVE PULMONARY DISEASE
  2. KLARICID [Suspect]
     Indication: ATYPICAL MYCOBACTERIAL INFECTION
  3. RIFAMPICIN [Suspect]
     Indication: CHRONIC OBSTRUCTIVE PULMONARY DISEASE
  4. RIFAMPICIN [Suspect]
     Indication: ATYPICAL MYCOBACTERIAL INFECTION
  5. ETHAMBUTOL [Suspect]
     Indication: CHRONIC OBSTRUCTIVE PULMONARY DISEASE
  6. ETHAMBUTOL [Suspect]
     Indication: ATYPICAL MYCOBACTERIAL INFECTION

REACTIONS (2)
  - Nephrotic syndrome [Recovering/Resolving]
  - Prerenal failure [Recovering/Resolving]
